FAERS Safety Report 9628250 (Version 2)
Quarter: 2014Q1

REPORT INFORMATION
  Report Type: Spontaneous
  Country: DE (occurrence: DE)
  Receive Date: 20131017
  Receipt Date: 20140214
  Transmission Date: 20141002
  Serious: No
  Sender: FDA-Public Use
  Company Number: DE-009507513-1310DEU005815

PATIENT
  Sex: 0

DRUGS (1)
  1. SYCREST [Suspect]
     Indication: SCHIZOPHRENIA
     Dosage: 5 MG, BID
     Route: 048
     Dates: start: 20130916, end: 20131007

REACTIONS (4)
  - Akathisia [Recovered/Resolved]
  - Restlessness [Recovered/Resolved]
  - Swelling face [Recovered/Resolved]
  - Eyelid oedema [Recovered/Resolved]
